FAERS Safety Report 7364001-6 (Version None)
Quarter: 2011Q1

REPORT INFORMATION
  Report Type: 
  Country: None (occurrence: None)
  Receive Date: 20110321
  Receipt Date: 20081008
  Transmission Date: 20110831
  Serious: Yes (Hospitalization)
  Sender: FDA-Public Use
  Company Number: US-BAYER-201018868NA

PATIENT
  Sex: Female
  Weight: 68 kg

DRUGS (12)
  1. LANTUS [Concomitant]
  2. YAZ [Suspect]
     Indication: PREMENSTRUAL SYNDROME
  3. NOVOLOG [Concomitant]
  4. DARVOCET [Concomitant]
     Indication: PAIN
  5. YASMIN [Suspect]
     Route: 048
     Dates: start: 20070401
  6. ANTIBIOTICS [Concomitant]
  7. YAZ [Suspect]
     Indication: ORAL CONTRACEPTION
     Dosage: UNK
     Route: 048
     Dates: start: 20070401, end: 20090902
  8. ALEVE [Concomitant]
  9. AMERGE [Concomitant]
  10. IMITREX [Concomitant]
  11. HYOSCYAMINE [Concomitant]
  12. PROPOXYPHENE HCL [Concomitant]

REACTIONS (3)
  - NAUSEA [None]
  - CHOLECYSTITIS [None]
  - ABDOMINAL PAIN UPPER [None]
